FAERS Safety Report 18369883 (Version 2)
Quarter: 2021Q1

REPORT INFORMATION
  Report Type: Other
  Country: ES (occurrence: ES)
  Receive Date: 20201012
  Receipt Date: 20210303
  Transmission Date: 20210419
  Serious: Yes (Death, Other)
  Sender: FDA-Public Use
  Company Number: ES-ROCHE-2687600

PATIENT

DRUGS (7)
  1. RITUXIMAB. [Suspect]
     Active Substance: RITUXIMAB
     Indication: AUTOIMMUNE DISORDER
  2. HYDROXYCHLOROQUINE [Suspect]
     Active Substance: HYDROXYCHLOROQUINE
     Indication: IMMUNOSUPPRESSION
     Route: 065
  3. TACROLIMUS. [Suspect]
     Active Substance: TACROLIMUS
     Indication: IMMUNOSUPPRESSION
     Route: 065
  4. RITUXIMAB. [Suspect]
     Active Substance: RITUXIMAB
     Indication: INTERSTITIAL LUNG DISEASE
     Dosage: DAY 0
     Route: 042
  5. SULPHASALAZINE [Suspect]
     Active Substance: SULFASALAZINE
     Indication: IMMUNOSUPPRESSION
     Route: 065
  6. MYCOPHENOLATE MOFETIL. [Suspect]
     Active Substance: MYCOPHENOLATE MOFETIL
     Indication: IMMUNOSUPPRESSION
     Route: 065
  7. AZATHIOPRINE. [Suspect]
     Active Substance: AZATHIOPRINE
     Indication: IMMUNOSUPPRESSION
     Route: 065

REACTIONS (10)
  - Rash [Unknown]
  - Intentional product use issue [Unknown]
  - Postoperative wound infection [Unknown]
  - Off label use [Unknown]
  - Pulmonary embolism [Unknown]
  - Lower respiratory tract infection [Fatal]
  - Lung neoplasm malignant [Fatal]
  - Diverticulitis [Unknown]
  - Respiratory tract infection [Unknown]
  - Infusion related reaction [Unknown]
